FAERS Safety Report 7237023 (Version 3)
Quarter: 2018Q4

REPORT INFORMATION
  Report Type: Report from Study
  Country: JP (occurrence: JP)
  Receive Date: 20100105
  Receipt Date: 20181001
  Transmission Date: 20190205
  Serious: Yes (Hospitalization, Other)
  Sender: FDA-Public Use
  Company Number: PHHY2009JP59161

PATIENT
  Age: 64 Year
  Sex: Female

DRUGS (6)
  1. GLIVEC [Suspect]
     Active Substance: IMATINIB MESYLATE
     Dosage: 400 MG/DAY
     Route: 048
     Dates: start: 20050525, end: 20070419
  2. GLIVEC [Suspect]
     Active Substance: IMATINIB MESYLATE
     Indication: GASTROINTESTINAL STROMAL TUMOUR
     Dosage: 400 MG, PER DAY
     Route: 048
     Dates: start: 20031206, end: 20050509
  3. GLIVEC [Suspect]
     Active Substance: IMATINIB MESYLATE
     Dosage: 300 MG/DAY
     Route: 048
     Dates: start: 20070614, end: 20071226
  4. GLIVEC [Suspect]
     Active Substance: IMATINIB MESYLATE
     Dosage: 400 MG/DAY
     Route: 048
     Dates: start: 20070503, end: 20070613
  5. GLIVEC [Suspect]
     Active Substance: IMATINIB MESYLATE
     Dosage: 400 MG, QD
     Route: 048
     Dates: start: 20071227, end: 20080826
  6. GLIVEC [Suspect]
     Active Substance: IMATINIB MESYLATE
     Dosage: 300 MG, QD
     Route: 048
     Dates: start: 20080827, end: 20081224

REACTIONS (13)
  - Pyrexia [Unknown]
  - Oedema [Recovering/Resolving]
  - Rash generalised [Recovered/Resolved]
  - Generalised oedema [Recovered/Resolved]
  - Pyelonephritis [Recovered/Resolved]
  - Metastases to liver [Unknown]
  - Face oedema [Unknown]
  - Oedema [Recovered/Resolved]
  - Ureterolithiasis [Recovered/Resolved]
  - Pain [Unknown]
  - Acute kidney injury [Recovered/Resolved]
  - Oedema peripheral [Unknown]
  - Localised oedema [Not Recovered/Not Resolved]

NARRATIVE: CASE EVENT DATE: 20050131
